FAERS Safety Report 5422749-4 (Version None)
Quarter: 2007Q3

REPORT INFORMATION
  Report Type: 
  Country: None (occurrence: None)
  Receive Date: 20070822
  Receipt Date: 20070807
  Transmission Date: 20080115
  Serious: No
  Sender: FDA-Public Use
  Company Number: US-BOEHRINGER INGELHEIM PHARMACEUTICALS, INC.-2007-BP-17749BP

PATIENT
  Age: 95 Year
  Sex: Female
  Weight: 43 kg

DRUGS (5)
  1. MICARDIS [Suspect]
     Indication: HYPERTENSION
     Route: 048
     Dates: start: 20070601, end: 20070719
  2. CLONIDINE [Concomitant]
     Route: 048
     Dates: start: 20050101
  3. PROPRANOLOL [Concomitant]
     Route: 048
     Dates: end: 20070601
  4. DYNACIRC CR [Concomitant]
     Route: 048
     Dates: start: 20070601
  5. SYNTHROID [Concomitant]
     Route: 048
     Dates: start: 20070601

REACTIONS (3)
  - RASH [None]
  - RASH MACULO-PAPULAR [None]
  - RASH PRURITIC [None]
